FAERS Safety Report 8223739-9 (Version None)
Quarter: 2012Q1

REPORT INFORMATION
  Report Type: 
  Country: None (occurrence: None)
  Receive Date: 20120316
  Receipt Date: 20120301
  Transmission Date: 20120608
  Serious: Yes (Life-Threatening, Hospitalization)
  Sender: FDA-Public Use
  Company Number: DSA_55334_2012

PATIENT
  Age: 60 Year
  Sex: Female

DRUGS (12)
  1. VOLTAREN [Suspect]
     Indication: PRODUCT USED FOR UNKNOWN INDICATION
     Dosage: (75 MG/DAILY ORAL)
     Route: 048
     Dates: end: 20120107
  2. SITAGLIPTIN PHOSPHATE [Suspect]
     Indication: TYPE 2 DIABETES MELLITUS
     Dosage: (100 MG QD ORAL)
     Route: 048
     Dates: end: 20120107
  3. LERCANIDIPINE [Suspect]
     Indication: PRODUCT USED FOR UNKNOWN INDICATION
     Dosage: (20 MG/DAILY ORAL) (DF ORAL)
     Route: 048
     Dates: end: 20120107
  4. LERCANIDIPINE [Suspect]
     Indication: PRODUCT USED FOR UNKNOWN INDICATION
     Dosage: (20 MG/DAILY ORAL) (DF ORAL)
     Route: 048
     Dates: start: 20120115
  5. ENALAPRIL MALEATE AND HYDROCHLOROTHIAZIDE [Suspect]
     Indication: HYPERTENSION
     Dosage: (20 MG-12.5 MG/DAILY ORAL)
     Route: 048
     Dates: end: 20120107
  6. VALSARTAN [Suspect]
     Indication: PRODUCT USED FOR UNKNOWN INDICATION
     Dosage: (160 MG/DAILY ORAL)
     Route: 048
     Dates: end: 20120107
  7. LASILIX /00032601/ (LASILEX-FUROSEMIDE) (NOT SPECIFIED) [Suspect]
     Indication: PRODUCT USED FOR UNKNOWN INDICATION
     Dosage: (40 MG/DAILY ORAL), (20 MG/DAILY ORAL), (DF ORAL)
     Route: 048
     Dates: start: 20120102, end: 20120107
  8. LASILIX /00032601/ (LASILEX-FUROSEMIDE) (NOT SPECIFIED) [Suspect]
     Indication: PRODUCT USED FOR UNKNOWN INDICATION
     Dosage: (40 MG/DAILY ORAL), (20 MG/DAILY ORAL), (DF ORAL)
     Route: 048
     Dates: end: 20120101
  9. LASILIX /00032601/ (LASILEX-FUROSEMIDE) (NOT SPECIFIED) [Suspect]
     Indication: PRODUCT USED FOR UNKNOWN INDICATION
     Dosage: (40 MG/DAILY ORAL), (20 MG/DAILY ORAL), (DF ORAL)
     Route: 048
     Dates: start: 20120111
  10. POTASSIUM CHLORIDE [Suspect]
     Indication: PRODUCT USED FOR UNKNOWN INDICATION
     Dosage: (1 DOSE DAILY ORAL), (DF ORAL)
     Route: 048
     Dates: end: 20120107
  11. POTASSIUM CHLORIDE [Suspect]
     Indication: PRODUCT USED FOR UNKNOWN INDICATION
     Dosage: (1 DOSE DAILY ORAL), (DF ORAL)
     Route: 048
     Dates: end: 20120117
  12. METFORMIN HCL [Suspect]
     Indication: TYPE 2 DIABETES MELLITUS
     Dosage: (1 G QID ORAL)
     Route: 048
     Dates: end: 20120107

REACTIONS (6)
  - LACTIC ACIDOSIS [None]
  - HYPOGLYCAEMIA [None]
  - DIALYSIS [None]
  - RENAL FAILURE ACUTE [None]
  - COMA [None]
  - CARDIO-RESPIRATORY ARREST [None]
